FAERS Safety Report 19226116 (Version 1)
Quarter: 2021Q2

REPORT INFORMATION
  Report Type: Spontaneous
  Country: US (occurrence: US)
  Receive Date: 20210506
  Receipt Date: 20210506
  Transmission Date: 20210717
  Serious: Yes (Hospitalization)
  Sender: FDA-Public Use
  Company Number: US-RIGEL PHARMACEUTICALS, INC.-2021FOS000262

PATIENT
  Age: 67 Year
  Sex: Male
  Weight: 126.98 kg

DRUGS (1)
  1. TAVALISSE [Suspect]
     Active Substance: FOSTAMATINIB
     Indication: IMMUNE THROMBOCYTOPENIA
     Dosage: 150 MG, BID
     Route: 048
     Dates: start: 20190913

REACTIONS (4)
  - Dyspnoea [Unknown]
  - Coronary artery occlusion [Recovered/Resolved]
  - Myocardial necrosis marker increased [Unknown]
  - Palpitations [Unknown]

NARRATIVE: CASE EVENT DATE: 202104
